FAERS Safety Report 6770021-2 (Version None)
Quarter: 2010Q2

REPORT INFORMATION
  Report Type: 
  Country: None (occurrence: None)
  Receive Date: 20100615
  Receipt Date: 20100607
  Transmission Date: 20101027
  Serious: No
  Sender: FDA-Public Use
  Company Number: US-JNJFOC-20100403799

PATIENT
  Sex: Female
  Weight: 68.04 kg

DRUGS (9)
  1. FENTANYL [Suspect]
     Indication: BACK PAIN
     Dosage: 75MCG/PATCH/EVERY 72 HOURS
     Route: 062
  2. TOPROL-XL [Concomitant]
     Indication: HYPERTENSION
     Route: 048
  3. TIZANIDINE [Concomitant]
     Indication: MUSCLE SPASMS
     Route: 048
  4. HYZAAR [Concomitant]
     Indication: HYPERTENSION
     Dosage: 100-25 MG ONCE PER DAY
     Route: 048
  5. PLAVIX [Concomitant]
     Indication: CEREBROVASCULAR ACCIDENT
     Route: 048
  6. NEXIUM [Concomitant]
     Indication: DRUG USE FOR UNKNOWN INDICATION
     Route: 048
  7. SIMVASTATIN [Concomitant]
     Indication: BLOOD CHOLESTEROL ABNORMAL
     Route: 048
  8. XANAX [Concomitant]
     Indication: ANXIETY
     Dosage: 0.25 MG TABLET THREE TIMES PER DAY AS NEEDED
     Route: 048
  9. ADVAIR DISKUS 100/50 [Concomitant]
     Indication: ASTHMA
     Dosage: 250/50 MCG PERINHALATION TWICE PER DAY/ORAL INHALATION
     Route: 055

REACTIONS (3)
  - INADEQUATE ANALGESIA [None]
  - PRODUCT ADHESION ISSUE [None]
  - WRONG TECHNIQUE IN DRUG USAGE PROCESS [None]
